FAERS Safety Report 8600914 (Version 2)
Quarter: 2014Q1

REPORT INFORMATION
  Report Type: Spontaneous
  Country: US (occurrence: None)
  Receive Date: 20120323
  Receipt Date: 20130305
  Transmission Date: 20141002
  Serious: Yes (Other)
  Sender: FDA-Public Use
  Company Number: 163-21880-11031713

PATIENT
  Age: 45 Year
  Sex: Female
  Weight: 63.96 kg

DRUGS (11)
  1. REVLIMID (LENALIDOMIDE) (25 MILLIGRAM, CAPSULES) [Suspect]
     Indication: PLASMA CELL MYELOMA
     Dosage: 25 MG, QD X14 DAYS, PO
     Route: 048
     Dates: start: 20080101
  2. ACYCLOVIR (ACICLOVIR) (CAPSULES) [Concomitant]
  3. ASPIRIN CHILDREN (ACETYLSALICYLIC ACID) (CHEWABLE TABLET)? [Concomitant]
  4. COLACE (DOCUSATE SODIUM) (CAPSULES) [Concomitant]
  5. DECADRON (DEXAMETHASONE) (CAPSULES) [Concomitant]
  6. EXCEDRIN (EXCEDRIN /USA/) (TABLETS) [Concomitant]
  7. GLYBURIDE (GLIBENCLAMIDE) (TABLETS) [Concomitant]
  8. LYRICA (PREGABALIN) (CAPSULES) [Concomitant]
  9. METFORMIN (METFORMIN) (TABLETS) [Concomitant]
  10. PERCOCET (OXYCOCET) TABLETS) [Concomitant]
  11. ZOFRAN (ONDANSETRON HYDORCHLORIDE) (TABLETS) [Concomitant]

REACTIONS (3)
  - Disease recurrence [None]
  - Blood immunoglobulin G increased [None]
  - Disease progression [None]
